FAERS Safety Report 24665115 (Version 1)
Quarter: 2024Q4

REPORT INFORMATION
  Report Type: Spontaneous
  Country: RS (occurrence: RS)
  Receive Date: 20241126
  Receipt Date: 20241126
  Transmission Date: 20250114
  Serious: Yes (Other)
  Sender: AMGEN
  Company Number: RS-AMGEN-SRBSP2024221392

PATIENT
  Age: 54 Year
  Sex: Male

DRUGS (6)
  1. VECTIBIX [Suspect]
     Active Substance: PANITUMUMAB
     Indication: Rectal adenocarcinoma
     Dosage: UNK
     Route: 065
     Dates: start: 20240801
  2. ROSUVASTATIN CALCIUM [Concomitant]
     Active Substance: ROSUVASTATIN CALCIUM
     Indication: Hyperlipidaemia
     Dosage: 10 MILLIGRAM, QD, TAKEN ONCE IN THE EVENING
     Route: 065
  3. SAURUS [Concomitant]
     Indication: Hyperlipidaemia
     Dosage: UNK, QD
     Route: 065
  4. LEUCOVORIN [Concomitant]
     Active Substance: LEUCOVORIN\LEUCOVORIN CALCIUM
     Indication: Rectal adenocarcinoma
     Dosage: UNK
     Route: 065
  5. FLUOROURACIL [Concomitant]
     Active Substance: FLUOROURACIL
     Indication: Rectal adenocarcinoma
     Dosage: UNK
     Route: 065
  6. IRINOTECAN [Concomitant]
     Active Substance: IRINOTECAN
     Indication: Rectal adenocarcinoma
     Dosage: UNK
     Route: 065

REACTIONS (1)
  - Lymphadenopathy mediastinal [Unknown]

NARRATIVE: CASE EVENT DATE: 20240101
